FAERS Safety Report 10041292 (Version 1)
Quarter: 2014Q1

REPORT INFORMATION
  Report Type: Spontaneous
  Country: IT (occurrence: IT)
  Receive Date: 20140327
  Receipt Date: 20140327
  Transmission Date: 20141002
  Serious: Yes (Hospitalization)
  Sender: FDA-Public Use
  Company Number: IT-ABBVIE-14P-083-1217112-00

PATIENT
  Age: 30 Year
  Sex: Female

DRUGS (4)
  1. FEVARIN [Suspect]
     Indication: PRODUCT USED FOR UNKNOWN INDICATION
     Route: 048
     Dates: start: 20121027, end: 20121027
  2. NOZINAN [Suspect]
     Indication: PRODUCT USED FOR UNKNOWN INDICATION
     Route: 048
     Dates: start: 20121027, end: 20121027
  3. DINTOINA [Suspect]
     Indication: PRODUCT USED FOR UNKNOWN INDICATION
     Route: 048
     Dates: start: 20121027, end: 20121027
  4. CLOZAPINA [Suspect]
     Indication: PRODUCT USED FOR UNKNOWN INDICATION
     Route: 048
     Dates: start: 20121027, end: 20121027

REACTIONS (2)
  - Wrong drug administered [Recovered/Resolved]
  - Somnolence [Recovered/Resolved]
